FAERS Safety Report 11930002 (Version 1)
Quarter: 2016Q1

REPORT INFORMATION
  Report Type: Spontaneous
  Country: US (occurrence: None)
  Receive Date: 20160119
  Receipt Date: 20160119
  Transmission Date: 20160526
  Serious: Yes (Hospitalization)
  Sender: FDA-Public Use
  Company Number: None

PATIENT
  Age: 62 Year
  Sex: Male
  Weight: 88.45 kg

DRUGS (16)
  1. ADDERALL [Concomitant]
     Active Substance: AMPHETAMINE ASPARTATE\AMPHETAMINE SULFATE\DEXTROAMPHETAMINE SACCHARATE\DEXTROAMPHETAMINE SULFATE
  2. TESTOSTERONE. [Concomitant]
     Active Substance: TESTOSTERONE
  3. FLUTICASONE PROPIONATE. [Concomitant]
     Active Substance: FLUTICASONE PROPIONATE
  4. MULTI VITAMINS [Concomitant]
  5. KETAMINE [Suspect]
     Active Substance: KETAMINE
     Indication: SURGERY
     Dosage: ONCE IN SURGERY INTO A VEIN
     Dates: start: 20141023, end: 20141023
  6. CLINDAMYCIN [Concomitant]
     Active Substance: CLINDAMYCIN\CLINDAMYCIN PHOSPHATE
  7. LUNESTA [Concomitant]
     Active Substance: ESZOPICLONE
  8. HIZENTRA [Concomitant]
     Active Substance: HUMAN IMMUNOGLOBULIN G
  9. INFUSION PUMP [Concomitant]
     Active Substance: DEVICE
  10. JAYLN [Concomitant]
     Active Substance: DUTASTERIDE\TAMSULOSIN
  11. ESTER C [Concomitant]
  12. SYNTHROID [Concomitant]
     Active Substance: LEVOTHYROXINE SODIUM
  13. MORPHINE SULFATE. [Concomitant]
     Active Substance: MORPHINE SULFATE
  14. PAXIL [Concomitant]
     Active Substance: PAROXETINE HYDROCHLORIDE
  15. SINGULAIR [Concomitant]
     Active Substance: MONTELUKAST SODIUM
  16. B 12 INJECTION [Concomitant]

REACTIONS (3)
  - Anger [None]
  - Cystitis [None]
  - Blood pressure inadequately controlled [None]

NARRATIVE: CASE EVENT DATE: 20141023
